FAERS Safety Report 4317268-2 (Version None)
Quarter: 2004Q1

REPORT INFORMATION
  Report Type: 
  Country: None (occurrence: None)
  Receive Date: 20040312
  Receipt Date: 20040226
  Transmission Date: 20041129
  Serious: Yes (Hospitalization)
  Sender: FDA-Public Use
  Company Number: 220039

PATIENT
  Age: 68 Year
  Sex: Female
  Weight: 36.3 kg

DRUGS (1)
  1. NOVORAPID PENFILL 3 ML (NOVORAPID PENFILL 3 ML) (INSULIN ASPART) SOLUT [Suspect]
     Indication: DIABETES MELLITUS NON-INSULIN-DEPENDENT
     Dosage: 9 IU, QD
     Dates: start: 20020823, end: 20020913

REACTIONS (1)
  - GASTROENTERITIS VIRAL [None]
